FAERS Safety Report 6785853-4 (Version None)
Quarter: 2010Q2

REPORT INFORMATION
  Report Type: 
  Country: None (occurrence: None)
  Receive Date: 20100623
  Receipt Date: 20100611
  Transmission Date: 20101027
  Serious: Yes (Death, Life-Threatening)
  Sender: FDA-Public Use
  Company Number: JP-PFIZER INC-2010030068

PATIENT
  Age: 70 Year
  Sex: Male
  Weight: 57 kg

DRUGS (7)
  1. ZYVOX [Suspect]
     Indication: PNEUMONIA STAPHYLOCOCCAL
     Dosage: 600 MG, 1X/DAY
     Route: 041
     Dates: start: 20100301, end: 20100301
  2. TARGOCID [Concomitant]
     Indication: PNEUMONIA STAPHYLOCOCCAL
     Dosage: UNK
  3. DOBUTREX [Concomitant]
     Indication: CARDIAC FAILURE
     Dosage: 400 MG, 1X/DAY
     Route: 042
     Dates: start: 20100118, end: 20100307
  4. MILRILA [Concomitant]
     Indication: CARDIAC FAILURE
     Dosage: 40 MG, 1X/DAY
     Route: 042
     Dates: start: 20100223, end: 20100304
  5. ANCARON [Concomitant]
     Indication: ARRHYTHMIA
     Dosage: 100 MG, 2X/DAY
     Route: 048
     Dates: start: 20100206, end: 20100307
  6. ACARDI [Concomitant]
     Indication: CARDIAC FAILURE
     Dosage: 2.5 MG, 2X/DAY
     Route: 048
     Dates: start: 20091215, end: 20100307
  7. ARTIST [Concomitant]
     Indication: CARDIAC FAILURE
     Dosage: 2.5 MG, 1X/DAY
     Route: 048
     Dates: start: 20100227, end: 20100307

REACTIONS (3)
  - CARDIAC FAILURE [None]
  - ELECTROCARDIOGRAM QT PROLONGED [None]
  - VENTRICULAR TACHYCARDIA [None]
